FAERS Safety Report 9741669 (Version 2)
Quarter: 2013Q4

REPORT INFORMATION
  Report Type: Report from Study
  Country: BR (occurrence: BR)
  Receive Date: 20131210
  Receipt Date: 20131210
  Transmission Date: 20140711
  Serious: Yes (Hospitalization)
  Sender: FDA-Public Use
  Company Number: BR-ROCHE-661549

PATIENT
  Age: 16 Year
  Sex: Female
  Weight: 70 kg

DRUGS (7)
  1. TOCILIZUMAB [Suspect]
     Indication: JUVENILE IDIOPATHIC ARTHRITIS
     Dosage: FORM: INJECTABLE SOLUTION
     Route: 042
     Dates: start: 20090807, end: 20121023
  2. PANTOPRAZOLE [Concomitant]
     Indication: GASTRIC DISORDER
     Route: 065
  3. METICORTEN [Concomitant]
     Route: 065
  4. ENDOFOLIN [Concomitant]
     Route: 065
  5. METHOTREXATE [Concomitant]
     Route: 065
  6. NAPROSYN [Concomitant]
     Indication: ANTIINFLAMMATORY THERAPY
     Route: 065
  7. ARAVA [Concomitant]

REACTIONS (12)
  - Immunodeficiency [Unknown]
  - Viral infection [Recovered/Resolved]
  - Fatigue [Unknown]
  - Asthenia [Not Recovered/Not Resolved]
  - Pallor [Not Recovered/Not Resolved]
  - Oral pruritus [Recovered/Resolved]
  - Rotavirus infection [Recovering/Resolving]
  - Swelling [Recovered/Resolved]
  - Asthenia [Recovered/Resolved]
  - Pain [Unknown]
  - Disturbance in attention [Not Recovered/Not Resolved]
  - Dizziness [Not Recovered/Not Resolved]
